FAERS Safety Report 16165431 (Version 2)
Quarter: 2019Q2

REPORT INFORMATION
  Report Type: Report from Study
  Country: RO (occurrence: RO)
  Receive Date: 20190405
  Receipt Date: 20190411
  Transmission Date: 20190711
  Serious: Yes (Death, Hospitalization, Other)
  Sender: FDA-Public Use
  Company Number: RO-GILEAD-2019-0385989

PATIENT
  Age: 73 Year
  Sex: Female

DRUGS (14)
  1. BISOTENS [Concomitant]
  2. COLCHICINA [Concomitant]
     Active Substance: COLCHICINE
  3. NOLPAZA [Concomitant]
     Active Substance: PANTOPRAZOLE SODIUM
  4. INDAPAMID [Concomitant]
     Active Substance: INDAPAMIDE
  5. HEPA-MERZ [ORNITHINE ASPARTATE] [Concomitant]
  6. CAVINTON FORTE [Concomitant]
  7. PENTOXIFYLLINE. [Concomitant]
     Active Substance: PENTOXIFYLLINE
  8. ASPENTER [Concomitant]
     Active Substance: ASPIRIN
  9. LEDIPASVIR/SOFOSBUVIR [Suspect]
     Active Substance: LEDIPASVIR\SOFOSBUVIR
     Indication: CHRONIC HEPATITIS C
     Dosage: 1 DF, QD
     Route: 048
     Dates: start: 20190109, end: 20190328
  10. NITROMINT [Concomitant]
     Active Substance: NITROGLYCERIN
  11. OXIFLUX [Concomitant]
  12. SORBIFER [FERROUS SULFATE] [Concomitant]
  13. INSULINA [INSULIN] [Concomitant]
  14. ALMACOR [Concomitant]

REACTIONS (8)
  - Diarrhoea [Not Recovered/Not Resolved]
  - Mixed dementia [Unknown]
  - Cerebrovascular accident [Recovering/Resolving]
  - Cerebrovascular accident [Fatal]
  - Vomiting [Not Recovered/Not Resolved]
  - Epilepsy [Unknown]
  - Hepatic encephalopathy [Unknown]
  - Renal failure [Unknown]

NARRATIVE: CASE EVENT DATE: 20190110
